FAERS Safety Report 24251847 (Version 1)
Quarter: 2024Q3

REPORT INFORMATION
  Report Type: Spontaneous
  Country: GB (occurrence: GB)
  Receive Date: 20240827
  Receipt Date: 20240827
  Transmission Date: 20241017
  Serious: Yes (Other)
  Sender: AUROBINDO
  Company Number: GB-MHRA-TPP38764701C9724933YC1723555656401

PATIENT
  Age: 71 Year
  Sex: Female
  Weight: 50 kg

DRUGS (6)
  1. AMLODIPINE [Suspect]
     Active Substance: AMLODIPINE BESYLATE
     Indication: Ill-defined disorder
     Dosage: 5 MILLIGRAM, ONCE A DAY (TAKE ONE TABLET ONCE A DAY)
     Route: 065
     Dates: start: 20240813
  2. METFORMIN [Concomitant]
     Active Substance: METFORMIN HYDROCHLORIDE
     Indication: Ill-defined disorder
     Dosage: 1 DOSAGE FORM, DAILY (TAKE ONE DAILY  )
     Route: 065
     Dates: start: 20200807
  3. ACETAMINOPHEN [Concomitant]
     Active Substance: ACETAMINOPHEN
     Indication: Ill-defined disorder
     Dosage: 2 DOSAGE FORM, ONCE A DAY (2 TABLETS QDS)
     Route: 065
     Dates: start: 20210818, end: 20240812
  4. SENNA [Concomitant]
     Active Substance: SENNA LEAF\SENNOSIDES\SENNOSIDES A AND B
     Indication: Ill-defined disorder
     Dosage: TAKE ONCE A DAY AT NIGHT
     Route: 065
     Dates: start: 20211202
  5. RAMIPRIL [Concomitant]
     Active Substance: RAMIPRIL
     Indication: Ill-defined disorder
     Dosage: 1 DOSAGE FORM, ONCE A DAY (TAKE ONE CAPSULE EACH DAY)
     Route: 065
     Dates: start: 20230530
  6. HYDROXOCOBALAMIN [Concomitant]
     Active Substance: HYDROXOCOBALAMIN
     Indication: Ill-defined disorder
     Dosage: AS DIECTED
     Route: 065
     Dates: start: 20240306

REACTIONS (1)
  - Anosmia [Unknown]
